FAERS Safety Report 7331308-8 (Version None)
Quarter: 2011Q1

REPORT INFORMATION
  Report Type: 
  Country: None (occurrence: None)
  Receive Date: 20110228
  Receipt Date: 20110228
  Transmission Date: 20110831
  Serious: Yes (Other)
  Sender: FDA-Public Use
  Company Number: None

PATIENT
  Sex: Female

DRUGS (2)
  1. ALDACTONE [Suspect]
     Indication: HYPERTENSION
     Dosage: 25MGS ONE QD ORAL
     Route: 048
     Dates: start: 20030601
  2. ALDACTONE [Suspect]
     Indication: ARTERIOSCLEROSIS CORONARY ARTERY
     Dosage: 25MGS ONE QD ORAL
     Route: 048
     Dates: start: 20030601

REACTIONS (3)
  - DYSPNOEA [None]
  - BLISTER [None]
  - RASH [None]
